FAERS Safety Report 5975238-2 (Version None)
Quarter: 2008Q4

REPORT INFORMATION
  Report Type: 
  Country: None (occurrence: None)
  Receive Date: 20081128
  Receipt Date: 20081114
  Transmission Date: 20090506
  Serious: Yes (Other)
  Sender: FDA-Public Use
  Company Number: DSA_32757_2008

PATIENT
  Age: 67 Year
  Sex: Male

DRUGS (2)
  1. DILTIAZEM [Suspect]
     Indication: CARDIAC FAILURE CONGESTIVE
     Dosage: (200 MG QD ORAL)
     Route: 048
     Dates: start: 20040101
  2. ALDACTONE [Suspect]
     Indication: CARDIAC FAILURE CONGESTIVE
     Dosage: (25 MG, ORAL)
     Route: 048
     Dates: start: 20040101

REACTIONS (1)
  - GYNAECOMASTIA [None]
